FAERS Safety Report 26118253 (Version 1)
Quarter: 2025Q4

REPORT INFORMATION
  Report Type: Spontaneous
  Country: US (occurrence: None)
  Receive Date: 20251203
  Receipt Date: 20251203
  Transmission Date: 20260119
  Serious: Yes (Other)
  Sender: AMERICAN REGENT
  Company Number: US-AMERICAN REGENT INC-2025004214

PATIENT
  Age: 75 Year
  Sex: Female

DRUGS (2)
  1. VENOFER [Suspect]
     Active Substance: IRON SUCROSE
     Indication: Product used for unknown indication
     Dosage: PATIENT HAS BEEN RECEIVING VENOFER IRON INFUSIONS FOR 25 YEARS
  2. VENOFER [Suspect]
     Active Substance: IRON SUCROSE
     Dosage: UNK, SINGLE
     Dates: start: 20251125, end: 20251125

REACTIONS (8)
  - Crying [Unknown]
  - Confusional state [Unknown]
  - Hypertension [Unknown]
  - Nausea [Unknown]
  - Dizziness [Unknown]
  - Pain in extremity [Unknown]
  - Pruritus [Unknown]
  - Head discomfort [Unknown]

NARRATIVE: CASE EVENT DATE: 20251101
